FAERS Safety Report 13470803 (Version 1)
Quarter: 2017Q2

REPORT INFORMATION
  Report Type: Spontaneous
  Country: US (occurrence: US)
  Receive Date: 20170424
  Receipt Date: 20170424
  Transmission Date: 20170830
  Serious: Yes (Other)
  Sender: FDA-Public Use
  Company Number: US-ROCHE-1923227

PATIENT
  Age: 26 Year
  Sex: Female

DRUGS (1)
  1. XOLAIR [Suspect]
     Active Substance: OMALIZUMAB
     Indication: ASTHMA
     Route: 058
     Dates: start: 20160501

REACTIONS (3)
  - Arthralgia [Not Recovered/Not Resolved]
  - Myalgia [Unknown]
  - Corona virus infection [Unknown]

NARRATIVE: CASE EVENT DATE: 20160801
